FAERS Safety Report 7787792-9 (Version None)
Quarter: 2011Q3

REPORT INFORMATION
  Report Type: 
  Country: None (occurrence: None)
  Receive Date: 20110930
  Receipt Date: 20110926
  Transmission Date: 20111222
  Serious: Yes (Hospitalization)
  Sender: FDA-Public Use
  Company Number: SE-BRISTOL-MYERS SQUIBB COMPANY-14641823

PATIENT
  Age: 62 Year
  Sex: Female

DRUGS (4)
  1. ORENCIA [Suspect]
     Indication: RHEUMATOID ARTHRITIS
     Dosage: POWDER FOR CONCENTRATE FOR SOLN FOR INF 250MG.
     Route: 042
     Dates: start: 20090109, end: 20090226
  2. METHOTREXATE SODIUM [Concomitant]
     Dosage: SOLN FOR INJ, 1 DF = 10 MG/ML.
  3. ORENCIA [Suspect]
     Indication: IMMUNOSUPPRESSANT DRUG THERAPY
     Dosage: POWDER FOR CONCENTRATE FOR SOLN FOR INF 250MG.
     Route: 042
     Dates: start: 20090109, end: 20090226
  4. PREDNISOLONE [Concomitant]
     Dosage: TAKEN AS TABS.

REACTIONS (2)
  - PNEUMONIA BACTERIAL [None]
  - LEFT VENTRICULAR FAILURE [None]
